FAERS Safety Report 14816247 (Version 7)
Quarter: 2018Q4

REPORT INFORMATION
  Report Type: Spontaneous
  Country: FR (occurrence: FR)
  Receive Date: 20180426
  Receipt Date: 20181031
  Transmission Date: 20190204
  Serious: Yes (Hospitalization, Congenital Anomaly, Other)
  Sender: FDA-Public Use
  Company Number: FR-PFIZER INC-2017333733

PATIENT
  Sex: Male

DRUGS (4)
  1. MIFEGYNE [Suspect]
     Active Substance: MIFEPRISTONE
     Indication: ABORTION INDUCED
     Dosage: 3 TABLETS, SINGLE
     Route: 064
     Dates: start: 20150504, end: 20150504
  2. CYTOTEC [Suspect]
     Active Substance: MISOPROSTOL
     Indication: ABORTION INDUCED
     Dosage: 2 TABLETS, SINGLE
     Route: 064
     Dates: start: 20150506, end: 20150506
  3. OPTIMIZETTE [Concomitant]
     Active Substance: DESOGESTREL
     Dosage: UNK
     Route: 064
  4. SUBUTEX [Concomitant]
     Active Substance: BUPRENORPHINE HYDROCHLORIDE
     Dosage: 6 MG, DAILY
     Route: 064
     Dates: start: 2004

REACTIONS (3)
  - Encephalocele [Unknown]
  - Maternal exposure during pregnancy [Unknown]
  - Foetal growth restriction [Unknown]

NARRATIVE: CASE EVENT DATE: 20150504
